FAERS Safety Report 8789083 (Version 2)
Quarter: 2012Q4

REPORT INFORMATION
  Report Type: 
  Country: JP (occurrence: JP)
  Receive Date: 20120917
  Receipt Date: 20121213
  Transmission Date: 20130627
  Serious: Yes (Hospitalization, Disabling)
  Sender: FDA-Public Use
  Company Number: JP-009507513-2012SP033059

PATIENT
  Age: 51 Year
  Sex: Female
  Weight: 58 kg

DRUGS (21)
  1. TEMODAL [Suspect]
     Indication: MALIGNANT GLIOMA
     Dosage: 120 mg, qd
     Route: 048
     Dates: start: 20091115, end: 20091225
  2. TEMODAL [Suspect]
     Dosage: 240 mg, qd
     Route: 048
     Dates: start: 20100427, end: 20100501
  3. TEMODAL [Suspect]
     Dosage: 300 mg, qd
     Route: 048
     Dates: start: 20100527, end: 20100531
  4. TEMODAL [Suspect]
     Dosage: 300 mg, qd
     Route: 048
     Dates: start: 20100624, end: 20100628
  5. TEMODAL [Suspect]
     Dosage: 300 mg, qd
     Route: 048
     Dates: start: 20100722, end: 20100726
  6. TEMODAL [Suspect]
     Dosage: 300 mg, qd
     Route: 048
     Dates: start: 20100923, end: 20100927
  7. TEMODAL [Suspect]
     Dosage: 300 mg, qd
     Route: 048
     Dates: start: 20101021, end: 20101025
  8. TEMODAL [Suspect]
     Dosage: 300 mg, qd
     Route: 048
     Dates: start: 20101118, end: 20101122
  9. TEMODAL [Suspect]
     Dosage: 300 mg, qd
     Route: 048
     Dates: start: 20101216, end: 20101220
  10. TEMODAL [Suspect]
     Dosage: 300 mg, qd
     Route: 048
     Dates: start: 20110113, end: 20110117
  11. TEMODAL [Suspect]
     Dosage: 300 mg, qd
     Route: 048
     Dates: start: 20110210, end: 20110214
  12. TEMODAL [Suspect]
     Dosage: 300 mg, qd
     Route: 048
     Dates: start: 20110310, end: 20110314
  13. TEMODAL [Suspect]
     Dosage: 300 mg, qd
     Route: 048
     Dates: start: 20110407, end: 20110411
  14. TEMODAL [Suspect]
     Dosage: 300 mg, qd
     Route: 048
     Dates: start: 20110505, end: 20110509
  15. TEMODAL [Suspect]
     Dosage: 300 mg, qd
     Route: 048
     Dates: start: 20110602, end: 20110606
  16. TEMODAL [Suspect]
     Dosage: 300 mg, qd
     Route: 048
     Dates: start: 20110630, end: 20110704
  17. TEMODAL [Suspect]
     Dosage: UNK
     Dates: start: 20110826
  18. DEPAKENE [Concomitant]
     Indication: EPILEPSY
     Dosage: Divided dose frequency unknown
     Route: 048
     Dates: start: 20060602, end: 20110728
  19. TEGRETOL [Concomitant]
     Indication: EPILEPSY
     Dosage: Divided dose frequency unknown
     Route: 048
     Dates: start: 20060602, end: 20110728
  20. TAKEPRON [Concomitant]
     Indication: PROPHYLAXIS AGAINST GASTROINTESTINAL ULCER
     Dosage: Divided dose frequency unknown
     Route: 048
     Dates: start: 20071001, end: 20110728
  21. MAGLAX (MAGNESIUM OXIDE) [Concomitant]
     Indication: CONSTIPATION
     Dosage: Divided dose frequency unknown
     Route: 048
     Dates: start: 20100607, end: 20110728

REACTIONS (1)
  - Cerebral infarction [Recovered/Resolved with Sequelae]
